FAERS Safety Report 19949905 (Version 1)
Quarter: 2021Q4

REPORT INFORMATION
  Report Type: Spontaneous
  Country: US (occurrence: US)
  Receive Date: 20211013
  Receipt Date: 20211013
  Transmission Date: 20220303
  Serious: No
  Sender: FDA-Public Use
  Company Number: US-ACCORD-214465

PATIENT
  Age: 51 Year
  Sex: Male
  Weight: 167.83 kg

DRUGS (18)
  1. GLIPIZIDE [Suspect]
     Active Substance: GLIPIZIDE
     Indication: Product used for unknown indication
     Dates: end: 2020
  2. KORLYM [Suspect]
     Active Substance: MIFEPRISTONE
     Indication: Cushing^s syndrome
     Dosage: 300 MG QD
     Route: 048
     Dates: start: 20200505
  3. VRAYLAR [Concomitant]
     Active Substance: CARIPRAZINE
  4. VITAMIN D [Concomitant]
     Active Substance: VITAMIN D NOS
     Dosage: 00107901
  5. TRAZODONE [Concomitant]
     Active Substance: TRAZODONE HYDROCHLORIDE
  6. PRILOSEC [Concomitant]
     Active Substance: OMEPRAZOLE MAGNESIUM
     Dosage: 00661201
  7. VITAMIN B12 [Concomitant]
     Active Substance: CYANOCOBALAMIN
     Dosage: 00056201
  8. NEURONTIN [Concomitant]
     Active Substance: GABAPENTIN
  9. NALTREXONE [Concomitant]
     Active Substance: NALTREXONE
  10. METFORMIN [Concomitant]
     Active Substance: METFORMIN HYDROCHLORIDE
  11. LITHIUM CARBONATE [Concomitant]
     Active Substance: LITHIUM CARBONATE
  12. JARDIANCE [Concomitant]
     Active Substance: EMPAGLIFLOZIN
  13. EXCEDRIN [Concomitant]
     Active Substance: ACETAMINOPHEN\ASPIRIN\CAFFEINE
     Dosage: 00110301
  14. CYMBALTA [Concomitant]
     Active Substance: DULOXETINE HYDROCHLORIDE
  15. CRESTOR [Concomitant]
     Active Substance: ROSUVASTATIN CALCIUM
  16. BUPROPION [Concomitant]
     Active Substance: BUPROPION
  17. FOLATE SODIUM [Concomitant]
     Active Substance: FOLATE SODIUM
  18. ASCORBIC ACID [Concomitant]
     Active Substance: ASCORBIC ACID

REACTIONS (2)
  - Blood glucose decreased [Recovered/Resolved]
  - Fatigue [Recovered/Resolved]

NARRATIVE: CASE EVENT DATE: 20200501
